FAERS Safety Report 6791255-7 (Version None)
Quarter: 2010Q2

REPORT INFORMATION
  Report Type: 
  Country: None (occurrence: None)
  Receive Date: 20100624
  Receipt Date: 20100614
  Transmission Date: 20101027
  Serious: Yes (Other)
  Sender: FDA-Public Use
  Company Number: US-WATSON-2010-08201

PATIENT
  Age: 50 Year
  Sex: Female

DRUGS (1)
  1. DOBUTAMINE HCL [Suspect]
     Indication: STRESS ECHOCARDIOGRAM
     Dosage: 10 TO 30 MCG/KG PER MINUTE INFUSION
     Route: 042

REACTIONS (1)
  - STRESS CARDIOMYOPATHY [None]
